FAERS Safety Report 6187922-9 (Version None)
Quarter: 2009Q2

REPORT INFORMATION
  Report Type: 
  Country: None (occurrence: None)
  Receive Date: 20090511
  Receipt Date: 20090511
  Transmission Date: 20091009
  Serious: Yes (Other)
  Sender: FDA-Public Use
  Company Number: None

PATIENT
  Age: 44 Year
  Sex: Male
  Weight: 93 kg

DRUGS (2)
  1. NOREPINEPHRINE BITARTRATE [Suspect]
     Indication: SEPTIC SHOCK
     Dosage: TITRATED MCG PER HOUR IV
     Route: 042
     Dates: start: 20090421, end: 20090423
  2. PHENYLEPHRINE [Suspect]
     Indication: SEPTIC SHOCK
     Dosage: TITRATED MCG PER HOUR IV
     Route: 042
     Dates: start: 20090422, end: 20090422

REACTIONS (1)
  - PERIPHERAL ISCHAEMIA [None]
